FAERS Safety Report 25742432 (Version 2)
Quarter: 2025Q4

REPORT INFORMATION
  Report Type: Report from Study
  Country: ZA (occurrence: ZA)
  Receive Date: 20250829
  Receipt Date: 20251217
  Transmission Date: 20260117
  Serious: Yes (Other)
  Sender: PFIZER
  Company Number: ZA-PFIZER INC-202500171162

PATIENT
  Age: 46 Year
  Sex: Male

DRUGS (3)
  1. SULFASALAZINE [Suspect]
     Active Substance: SULFASALAZINE
     Indication: Rheumatoid arthritis
     Dosage: 1.5 G, 2X/DAY
     Dates: start: 201908
  2. LEFLUNOMIDE [Concomitant]
     Active Substance: LEFLUNOMIDE
     Indication: Rheumatoid arthritis
     Dosage: 20 MG, DAILY
     Dates: start: 202501, end: 202504
  3. ENBREL [Concomitant]
     Active Substance: ETANERCEPT
     Dosage: 50 MG, WEEKLY

REACTIONS (4)
  - Deep vein thrombosis [Unknown]
  - Condition aggravated [Unknown]
  - Factor V Leiden mutation [Unknown]
  - Tuberculin test positive [Unknown]

NARRATIVE: CASE EVENT DATE: 20230601
